FAERS Safety Report 6183535-3 (Version None)
Quarter: 2009Q2

REPORT INFORMATION
  Report Type: 
  Country: None (occurrence: None)
  Receive Date: 20090508
  Receipt Date: 20090427
  Transmission Date: 20091009
  Serious: Yes (Other)
  Sender: FDA-Public Use
  Company Number: BR-RANBAXY-2009RR-22913

PATIENT
  Age: 2 Year
  Sex: Female

DRUGS (6)
  1. AMOXICILLIN [Suspect]
     Indication: BRONCHOPNEUMONIA
     Dosage: UNK
  2. CEFTRIAXONE [Suspect]
     Dosage: 100 MG/KG, UNK
  3. OXACILLIN [Suspect]
     Dosage: 200 MG/KG, UNK
  4. METHYLPREDNISOLONE 4MG TAB [Concomitant]
     Indication: VASCULITIS
     Dosage: 30 MG/KG, UNK
     Route: 042
  5. METHYLPREDNISOLONE 4MG TAB [Concomitant]
     Dosage: 30 MG/KG, QD
  6. CYCLOPHOSPHAMIDE [Concomitant]
     Indication: VASCULITIS
     Dosage: 500 MG/M2, UNK
     Route: 042

REACTIONS (1)
  - DRUG RASH WITH EOSINOPHILIA AND SYSTEMIC SYMPTOMS [None]
